FAERS Safety Report 19208692 (Version 1)
Quarter: 2021Q2

REPORT INFORMATION
  Report Type: Spontaneous
  Country: US (occurrence: US)
  Receive Date: 20210504
  Receipt Date: 20210504
  Transmission Date: 20210717
  Serious: Yes (Hospitalization)
  Sender: FDA-Public Use
  Company Number: US-MDD US OPERATIONS-SUP202104-000778

PATIENT
  Age: 46 Year
  Sex: Male
  Weight: 106.5 kg

DRUGS (8)
  1. VITAMIN B12 [Concomitant]
     Active Substance: CYANOCOBALAMIN
     Dosage: NOT PROVIDED
  2. TROKENDI XR [Suspect]
     Active Substance: TOPIRAMATE
     Route: 048
  3. TROKENDI XR [Suspect]
     Active Substance: TOPIRAMATE
     Route: 048
     Dates: start: 20210415
  4. LIMPET [Suspect]
     Active Substance: GLIMEPIRIDE
     Indication: PRODUCT USED FOR UNKNOWN INDICATION
     Dosage: NOT PROVIDED
     Dates: start: 202104, end: 20210426
  5. TROKENDI XR [Suspect]
     Active Substance: TOPIRAMATE
     Indication: SEIZURE
     Route: 048
  6. KLONOPIN [Concomitant]
     Active Substance: CLONAZEPAM
     Dosage: NOT PROVIDED
  7. MAGNESIUM [Concomitant]
     Active Substance: MAGNESIUM
     Dosage: NOT PROVIDED
  8. MELATONIN [Concomitant]
     Active Substance: MELATONIN
     Dosage: NOT PROVIDED

REACTIONS (4)
  - Rash [Not Recovered/Not Resolved]
  - Loss of consciousness [Unknown]
  - Seizure [Unknown]
  - Hepatic enzyme increased [Unknown]
